FAERS Safety Report 8458323-5 (Version None)
Quarter: 2012Q2

REPORT INFORMATION
  Report Type: 
  Country: None (occurrence: None)
  Receive Date: 20120323
  Receipt Date: 20111024
  Transmission Date: 20120825
  Serious: Yes (Hospitalization)
  Sender: FDA-Public Use
  Company Number: 163-21880-11102668

PATIENT
  Age: 49 Year
  Sex: Female

DRUGS (12)
  1. DEXAMETHASONE (DEXAMETHASONE) [Concomitant]
  2. COUMADIN [Concomitant]
  3. PREVACID [Concomitant]
  4. OXYCODONE HCL [Concomitant]
  5. PERCOCET [Concomitant]
  6. LASIX [Concomitant]
  7. POTASSIUM CHLORIDE [Concomitant]
  8. DILAUDID [Concomitant]
  9. ZANTAC [Concomitant]
  10. REVLIMID [Suspect]
     Indication: MULTIPLE MYELOMA
     Dosage: SEE IMAGE
     Route: 048
     Dates: start: 20110801
  11. REVLIMID [Suspect]
     Indication: MULTIPLE MYELOMA
     Dosage: SEE IMAGE
     Route: 048
     Dates: start: 20100505
  12. MAGNESIUM (MAGNESIUM) [Concomitant]

REACTIONS (2)
  - RASH [None]
  - DYSPNOEA [None]
